FAERS Safety Report 24563509 (Version 2)
Quarter: 2024Q4

REPORT INFORMATION
  Report Type: Spontaneous
  Country: AU (occurrence: AU)
  Receive Date: 20241030
  Receipt Date: 20241225
  Transmission Date: 20250115
  Serious: Yes (Death, Hospitalization, Other)
  Sender: CIPLA
  Company Number: AU-CIPLA LTD.-2024AU12204

PATIENT

DRUGS (9)
  1. AZACITIDINE [Suspect]
     Active Substance: AZACITIDINE
     Indication: Acute myeloid leukaemia
     Dosage: 75 MILLIGRAM(S)/SQ. METER 1 EVERY 1 DAY, INJECTION
     Route: 042
     Dates: start: 20240529, end: 20240531
  2. AZACITIDINE [Suspect]
     Active Substance: AZACITIDINE
     Dosage: 75 MILLIGRAM(S)/SQ. METER 1 EVERY 1 DAY, INJECTION
     Route: 042
     Dates: start: 20240603, end: 20240606
  3. AZACITIDINE [Suspect]
     Active Substance: AZACITIDINE
     Dosage: 75 MILLIGRAM(S)/SQ. METER 1 EVERY 1 DAY, INJECTION
     Route: 042
     Dates: start: 20240702, end: 20240705
  4. AZACITIDINE [Suspect]
     Active Substance: AZACITIDINE
     Dosage: 75 MILLIGRAM(S)/SQ. METER 1 EVERY 1 DAY, INJECTION
     Route: 042
     Dates: start: 20240708, end: 20240710
  5. LISAFTOCLAX [Suspect]
     Active Substance: LISAFTOCLAX
     Indication: Acute myeloid leukaemia
     Dosage: 200 MILLIGRAM ON DAY 1
     Route: 048
     Dates: start: 20240527
  6. LISAFTOCLAX [Suspect]
     Active Substance: LISAFTOCLAX
     Dosage: 400 MILLIGRAM ON DAY 2
     Route: 048
     Dates: start: 20240528
  7. LISAFTOCLAX [Suspect]
     Active Substance: LISAFTOCLAX
     Dosage: 600 MILLIGRAM ON C1D1
     Route: 048
     Dates: start: 20240529, end: 20240606
  8. LISAFTOCLAX [Suspect]
     Active Substance: LISAFTOCLAX
     Dosage: 600 MILLIGRAM
     Route: 048
     Dates: start: 20240613, end: 20240705
  9. LISAFTOCLAX [Suspect]
     Active Substance: LISAFTOCLAX
     Dosage: 600 MILLIGRAM
     Route: 048
     Dates: start: 20240708, end: 20240729

REACTIONS (4)
  - Death [Fatal]
  - Acute myocardial infarction [Recovering/Resolving]
  - Cardiac failure [Recovering/Resolving]
  - Thrombocytopenia [Recovered/Resolved]

NARRATIVE: CASE EVENT DATE: 20240728
